FAERS Safety Report 8451651-9 (Version None)
Quarter: 2012Q2

REPORT INFORMATION
  Report Type: 
  Country: None (occurrence: None)
  Receive Date: 20120620
  Receipt Date: 20120411
  Transmission Date: 20120825
  Serious: No
  Sender: FDA-Public Use
  Company Number: US-VERTEX PHARMACEUTICALS INC.-AE-2012-003532

PATIENT
  Sex: Female
  Weight: 59.928 kg

DRUGS (4)
  1. INCIVEK [Suspect]
     Indication: HEPATITIS C
     Route: 048
     Dates: start: 20120307
  2. SERAX [Concomitant]
     Route: 048
  3. PEGASYS [Concomitant]
     Indication: HEPATITIS C
     Route: 058
     Dates: start: 20120307
  4. RIBAVIRIN [Concomitant]
     Indication: HEPATITIS C
     Route: 048
     Dates: start: 20120307

REACTIONS (13)
  - TONGUE DISCOLOURATION [None]
  - PLATELET COUNT DECREASED [None]
  - RASH MACULAR [None]
  - FOREIGN BODY SENSATION IN EYES [None]
  - SENSATION OF FOREIGN BODY [None]
  - ABDOMINAL DISTENSION [None]
  - HAEMOGLOBIN DECREASED [None]
  - MYALGIA [None]
  - PRURITUS [None]
  - PYREXIA [None]
  - DIARRHOEA [None]
  - FATIGUE [None]
  - ANORECTAL DISCOMFORT [None]
